FAERS Safety Report 6011425-5 (Version None)
Quarter: 2008Q4

REPORT INFORMATION
  Report Type: 
  Country: None (occurrence: None)
  Receive Date: 20081218
  Receipt Date: 20000330
  Transmission Date: 20090506
  Serious: Yes (Death, Other)
  Sender: FDA-Public Use
  Company Number: JP-ROCHE-235180

PATIENT
  Age: 61 Year
  Sex: Female

DRUGS (1)
  1. VESANOID [Suspect]
     Indication: ACUTE MYELOID LEUKAEMIA
     Route: 048
     Dates: start: 19990731, end: 19990825

REACTIONS (4)
  - DEATH [None]
  - INTERSTITIAL LUNG DISEASE [None]
  - MEDIASTINAL HAEMATOMA [None]
  - RETINOIC ACID SYNDROME [None]
